FAERS Safety Report 7211493-9 (Version None)
Quarter: 2011Q1

REPORT INFORMATION
  Report Type: 
  Country: None (occurrence: None)
  Receive Date: 20110105
  Receipt Date: 20110103
  Transmission Date: 20110831
  Serious: Yes (Death)
  Sender: FDA-Public Use
  Company Number: DE-PFIZER INC-2011000510

PATIENT
  Sex: Female

DRUGS (1)
  1. SUTENT [Suspect]
     Indication: HEPATIC NEOPLASM MALIGNANT

REACTIONS (3)
  - DEATH [None]
  - SKIN DISORDER [None]
  - GAIT DISTURBANCE [None]
